FAERS Safety Report 4424341-7 (Version None)
Quarter: 2004Q3

REPORT INFORMATION
  Report Type: 
  Country: None (occurrence: None)
  Receive Date: 20040806
  Receipt Date: 20040806
  Transmission Date: 20050211
  Serious: Yes (Other)
  Sender: FDA-Public Use
  Company Number: None

PATIENT
  Age: 28 Year
  Sex: Female
  Weight: 63.9572 kg

DRUGS (1)
  1. CIPRO [Suspect]
     Dosage: CIPRO 500 MG  ORAL
     Route: 048
     Dates: start: 20040804, end: 20040804

REACTIONS (6)
  - CONFUSIONAL STATE [None]
  - DISORIENTATION [None]
  - DIZZINESS [None]
  - FEELING ABNORMAL [None]
  - FLUSHING [None]
  - MEMORY IMPAIRMENT [None]
